FAERS Safety Report 10748098 (Version 2)
Quarter: 2015Q2

REPORT INFORMATION
  Report Type: Spontaneous
  Country: US (occurrence: None)
  Receive Date: 20150120
  Receipt Date: 20150420
  Transmission Date: 20150821
  Serious: No
  Sender: FDA-Public Use
  Company Number: AEGR000839

PATIENT
  Age: 34 Year
  Sex: Male

DRUGS (12)
  1. VITAMIN E (TOCOPHERYL ACETATE) [Concomitant]
  2. LOVAZA [Concomitant]
     Active Substance: OMEGA-3-ACID ETHYL ESTERS
  3. METOPROLOL [Concomitant]
     Active Substance: METOPROLOL
  4. MVI (VITAMINS NOS) [Concomitant]
  5. ASPIRIN (ASPIRIN) [Concomitant]
     Active Substance: ASPIRIN
  6. LISINOPRIL. [Concomitant]
     Active Substance: LISINOPRIL
  7. PLAVIX (CLOPIDOGREL BISULFATE) [Concomitant]
  8. ZETIA [Concomitant]
     Active Substance: EZETIMIBE
  9. CRESTOR [Concomitant]
     Active Substance: ROSUVASTATIN CALCIUM
  10. NIASPAN (NICOTINIC ACID) [Concomitant]
  11. JUXTAPID [Suspect]
     Active Substance: LOMITAPIDE MESYLATE
     Indication: TYPE IIA HYPERLIPIDAEMIA
     Dates: start: 20140522, end: 20140819
  12. OMEGA (FISH OIL) [Concomitant]

REACTIONS (1)
  - Alanine aminotransferase increased [None]

NARRATIVE: CASE EVENT DATE: 20141014
